FAERS Safety Report 5869731-0 (Version None)
Quarter: 2008Q3

REPORT INFORMATION
  Report Type: 
  Country: None (occurrence: None)
  Receive Date: 20080902
  Receipt Date: 20080819
  Transmission Date: 20090109
  Serious: Yes (Other)
  Sender: FDA-Public Use
  Company Number: 08-001368

PATIENT
  Age: 68 Year
  Sex: Male

DRUGS (1)
  1. DORYX [Suspect]
     Indication: BRONCHITIS
     Dosage: 100 MG, BID

REACTIONS (14)
  - ABDOMINAL DISCOMFORT [None]
  - ACTIVITIES OF DAILY LIVING IMPAIRED [None]
  - AMNESIA [None]
  - APRAXIA [None]
  - ATAXIA [None]
  - CONDITION AGGRAVATED [None]
  - CONFUSIONAL STATE [None]
  - DISORIENTATION [None]
  - DISTURBANCE IN ATTENTION [None]
  - DYSARTHRIA [None]
  - FATIGUE [None]
  - MENTAL IMPAIRMENT [None]
  - THERAPEUTIC AGENT TOXICITY [None]
  - TREMOR [None]
